FAERS Safety Report 4577927-3 (Version None)
Quarter: 2005Q1

REPORT INFORMATION
  Report Type: 
  Country: None (occurrence: None)
  Receive Date: 20050209
  Receipt Date: 20050124
  Transmission Date: 20050727
  Serious: Yes (Hospitalization)
  Sender: FDA-Public Use
  Company Number: 30044

PATIENT
  Age: 74 Year
  Sex: Female

DRUGS (1)
  1. BSS PLUS SOLUTOIN (BATCH #S:  5072F, 1215F) [Suspect]
     Indication: SURGERY
     Dosage: IO
     Dates: start: 20041125, end: 20041125

REACTIONS (7)
  - CATARACT OPERATION COMPLICATION [None]
  - CORNEAL DISORDER [None]
  - CORNEAL OPACITY [None]
  - DESCEMET'S MEMBRANE DISORDER [None]
  - OCULAR HYPERTENSION [None]
  - PIGMENT DISPERSION SYNDROME [None]
  - PUPILLARY DISORDER [None]
